FAERS Safety Report 5792407-5 (Version None)
Quarter: 2008Q2

REPORT INFORMATION
  Report Type: 
  Country: None (occurrence: None)
  Receive Date: 20080626
  Receipt Date: 20080409
  Transmission Date: 20081010
  Serious: No
  Sender: FDA-Public Use
  Company Number: US-ASTRAZENECA-2008UW07094

PATIENT
  Age: 39 Year
  Sex: Female
  Weight: 43.1 kg

DRUGS (3)
  1. PULMICORT FLEXHALER [Suspect]
     Indication: ASTHMA
     Dosage: 2 PUFFS
     Route: 055
     Dates: start: 20070101
  2. XANAX [Concomitant]
  3. ZYRTEC [Concomitant]

REACTIONS (3)
  - INSOMNIA [None]
  - MENSTRUATION IRREGULAR [None]
  - OSTEOGENESIS IMPERFECTA [None]
